FAERS Safety Report 11310789 (Version 1)
Quarter: 2015Q3

REPORT INFORMATION
  Report Type: Spontaneous
  Country: JP (occurrence: JP)
  Receive Date: 20150726
  Receipt Date: 20150726
  Transmission Date: 20151125
  Serious: Yes (Hospitalization)
  Sender: FDA-Public Use
  Company Number: JP-CIPLA LTD.-2015JP05932

PATIENT

DRUGS (2)
  1. EPIRUBICIN [Suspect]
     Active Substance: EPIRUBICIN
     Indication: BREAST CANCER STAGE III
     Dosage: 400 MG/M2, EVERY 3 WEEKS
     Route: 065
  2. PACLITAXEL. [Suspect]
     Active Substance: PACLITAXEL
     Indication: BREAST CANCER STAGE III
     Dosage: UNK
     Route: 065

REACTIONS (13)
  - Decreased appetite [Unknown]
  - Cardiomyopathy [Recovered/Resolved]
  - Pulmonary congestion [Recovering/Resolving]
  - Oedema peripheral [Unknown]
  - Pseudomembranous colitis [Unknown]
  - Respiratory failure [Recovering/Resolving]
  - Pleural effusion [Recovering/Resolving]
  - Cardiotoxicity [Unknown]
  - Pyrexia [Unknown]
  - Sinus tachycardia [Recovered/Resolved]
  - Diarrhoea [Unknown]
  - Hypoproteinaemia [Unknown]
  - Cardiac failure congestive [Recovered/Resolved]
